FAERS Safety Report 16465884 (Version 1)
Quarter: 2019Q2

REPORT INFORMATION
  Report Type: Report from Study
  Country: US (occurrence: US)
  Receive Date: 20190621
  Receipt Date: 20190621
  Transmission Date: 20190711
  Serious: Yes (Hospitalization)
  Sender: FDA-Public Use
  Company Number: US-GILEAD-2019-0414684

PATIENT
  Age: 34 Year
  Sex: Female

DRUGS (1)
  1. AZTREONAM LYSINE [Suspect]
     Active Substance: AZTREONAM LYSINE
     Indication: CYSTIC FIBROSIS
     Dosage: INHALE 1 VIAL VIA NEBULIZER 3 TIMES DAILY FOR 28 DAYS ON AND 28 DAYS OFF
     Route: 055
     Dates: start: 20161130

REACTIONS (2)
  - Dyspnoea [Unknown]
  - Wheezing [Unknown]

NARRATIVE: CASE EVENT DATE: 20190620
